FAERS Safety Report 4356168-9 (Version None)
Quarter: 2004Q2

REPORT INFORMATION
  Report Type: 
  Country: None (occurrence: None)
  Receive Date: 20040506
  Receipt Date: 20040422
  Transmission Date: 20050107
  Serious: Yes (Hospitalization)
  Sender: FDA-Public Use
  Company Number: FRP04000191

PATIENT
  Age: 69 Year
  Sex: Male

DRUGS (4)
  1. ACTONEL [Suspect]
     Indication: OSTEITIS DEFORMANS
     Dosage: 30 MG, DAILY, ORAL
     Route: 048
     Dates: start: 20030918
  2. STEROGL (HYDROQUINONE) [Concomitant]
  3. DEDROGYL (CALCIFEDIOL) [Concomitant]
  4. VOLDAL (DICLOFENAC SODIUM) [Concomitant]

REACTIONS (2)
  - NEPHROLITHIASIS [None]
  - RENAL COLIC [None]
